FAERS Safety Report 5794189-X (Version None)
Quarter: 2008Q2

REPORT INFORMATION
  Report Type: 
  Country: None (occurrence: None)
  Receive Date: 20080627
  Receipt Date: 20080617
  Transmission Date: 20081010
  Serious: Yes (Death)
  Sender: FDA-Public Use
  Company Number: CZ-PFIZER INC-2008051060

PATIENT
  Age: 35 Year
  Sex: Male

DRUGS (2)
  1. VORICONAZOLE [Suspect]
  2. CASPOFUNGIN [Suspect]

REACTIONS (2)
  - BRONCHOPULMONARY ASPERGILLOSIS [None]
  - DRUG INEFFECTIVE [None]
